FAERS Safety Report 11841069 (Version 1)
Quarter: 2015Q4

REPORT INFORMATION
  Report Type: Spontaneous
  Country: US (occurrence: US)
  Receive Date: 20151216
  Receipt Date: 20151216
  Transmission Date: 20160305
  Serious: Yes (Hospitalization)
  Sender: FDA-Public Use
  Company Number: US-B.I. PHARMACEUTICALS,INC./RIDGEFIELD-2015-BI-69023BP

PATIENT
  Age: 54 Year
  Sex: Female
  Weight: 46 kg

DRUGS (8)
  1. TIZANIDINE. [Concomitant]
     Active Substance: TIZANIDINE
     Indication: MUSCLE SPASMS
     Dosage: 8 MG
     Route: 048
     Dates: start: 201509
  2. PULMICORT TURBUHALER [Concomitant]
     Active Substance: BUDESONIDE
     Indication: CHRONIC OBSTRUCTIVE PULMONARY DISEASE
     Dosage: DOSE PER APPLICATION: 1 INHALATION
     Route: 055
     Dates: start: 201512
  3. COMBIVENT [Suspect]
     Active Substance: ALBUTEROL SULFATE\IPRATROPIUM BROMIDE
     Indication: CHRONIC OBSTRUCTIVE PULMONARY DISEASE
     Dosage: DOSE PER APPLICATION: 20 MCG / 100 MCG;
     Route: 055
     Dates: start: 2015
  4. HYDROCHLOROTHIAZIDE. [Concomitant]
     Active Substance: HYDROCHLOROTHIAZIDE
     Indication: HYPERTENSION
     Dosage: 25 MG
     Route: 048
     Dates: start: 2015
  5. ZOLOFT [Concomitant]
     Active Substance: SERTRALINE HYDROCHLORIDE
     Indication: DEPRESSION
     Dosage: 75 MG
     Route: 048
  6. VENTOLIN [Concomitant]
     Active Substance: ALBUTEROL SULFATE
     Indication: CHRONIC OBSTRUCTIVE PULMONARY DISEASE
     Dosage: 1 INHALATION 1 TIME AS REQUIRED
     Route: 055
  7. CLONAZEPAM. [Concomitant]
     Active Substance: CLONAZEPAM
     Indication: ANXIETY
     Dosage: 3 MG
     Route: 048
     Dates: start: 2015
  8. DOXEPIN [Concomitant]
     Active Substance: DOXEPIN
     Indication: SLEEP DISORDER
     Dosage: 100 MG
     Route: 048
     Dates: start: 2015

REACTIONS (16)
  - Joint injury [Not Recovered/Not Resolved]
  - Hypertension [Unknown]
  - Oxygen saturation decreased [Unknown]
  - Cardiac failure congestive [Recovered/Resolved]
  - Thrombosis [Unknown]
  - Incorrect dose administered [Not Recovered/Not Resolved]
  - Pain [Unknown]
  - Headache [Unknown]
  - Fall [Not Recovered/Not Resolved]
  - Paraesthesia [Not Recovered/Not Resolved]
  - Panic attack [Unknown]
  - Gait disturbance [Unknown]
  - Chronic obstructive pulmonary disease [Recovered/Resolved]
  - Abdominal discomfort [Unknown]
  - Atrial fibrillation [Unknown]
  - Product quality issue [Unknown]

NARRATIVE: CASE EVENT DATE: 20151013
